FAERS Safety Report 8613529-7 (Version None)
Quarter: 2012Q3

REPORT INFORMATION
  Report Type: 
  Country: None (occurrence: None)
  Receive Date: 20120823
  Receipt Date: 20120807
  Transmission Date: 20120928
  Serious: Yes (Hospitalization, Other)
  Sender: FDA-Public Use
  Company Number: JP-009507513-2012SP025632

PATIENT

DRUGS (14)
  1. PEG-INTRON [Suspect]
     Dosage: 1.5 MICROGRAM PER KILOGRAM
     Route: 058
     Dates: start: 20120306, end: 20120313
  2. PEG-INTRON [Suspect]
     Dosage: 0.75 MICROGRAM PER KILOGRAM, QW
     Route: 058
     Dates: start: 20120515
  3. TELAPREVIR [Suspect]
     Dosage: 2250 MG, QD
     Route: 048
     Dates: start: 20120515, end: 20120605
  4. BETAMETHASONE SODIUM PHOSPHATE [Concomitant]
     Indication: RASH
     Dosage: UNK
     Dates: start: 20120410
  5. [THERAPY UNSPECIFIED] [Concomitant]
     Indication: DERMATITIS ALLERGIC
     Dosage: UNK
     Dates: start: 20120305
  6. REBETOL [Suspect]
     Dosage: 800 MG, QD
     Route: 048
     Dates: start: 20120515
  7. ALLEGRA [Concomitant]
     Indication: DERMATITIS ALLERGIC
     Dosage: 120 MG, QD
     Route: 048
     Dates: start: 20120305
  8. ALLOPURINOL [Concomitant]
     Indication: BLOOD URIC ACID INCREASED
     Dosage: UNK
     Route: 048
     Dates: start: 20120310
  9. PEG-INTRON [Suspect]
     Dosage: 0.75 MICROGRAM PER KILOGRAM, QW
     Route: 058
     Dates: start: 20120320, end: 20120501
  10. REBETOL [Suspect]
     Indication: HEPATITIS C
     Dosage: 800 MG, QD
     Route: 048
     Dates: start: 20120306, end: 20120507
  11. TELAPREVIR [Suspect]
     Indication: HEPATITIS C
     Dosage: 2250 MG, QD
     Route: 048
     Dates: start: 20120306, end: 20120507
  12. RABEPRAZOLE SODIUM [Concomitant]
     Indication: GASTROOESOPHAGEAL REFLUX DISEASE
     Dosage: 10 MG, QD
     Route: 048
     Dates: start: 20091019
  13. ATARAX [Concomitant]
     Indication: DERMATITIS ALLERGIC
     Dosage: 20 MG, QD
     Route: 048
     Dates: start: 20120305
  14. MEROPENEM [Concomitant]
     Indication: PNEUMONIA
     Dosage: 1 G, QD
     Dates: start: 20120507, end: 20120514

REACTIONS (2)
  - PLATELET COUNT DECREASED [None]
  - PNEUMONIA [None]
